FAERS Safety Report 24563239 (Version 1)
Quarter: 2024Q4

REPORT INFORMATION
  Report Type: Spontaneous
  Country: GB (occurrence: GB)
  Receive Date: 20241030
  Receipt Date: 20241030
  Transmission Date: 20250115
  Serious: Yes (Hospitalization)
  Sender: AMGEN
  Company Number: GB-Vifor (International) Inc.-VIT-2024-09792

PATIENT
  Age: 56 Year
  Sex: Female
  Weight: 48.8 kg

DRUGS (5)
  1. TAVNEOS [Suspect]
     Active Substance: AVACOPAN
     Indication: Anti-neutrophil cytoplasmic antibody positive vasculitis
     Dosage: TWICE DAILY (BD)
     Route: 048
     Dates: start: 20240503
  2. RITUXIMAB [Concomitant]
     Active Substance: RITUXIMAB
     Indication: Anti-neutrophil cytoplasmic antibody positive vasculitis
     Dosage: COMPLETION OF PLANNED COURSE, SINGLE IV INFUSION
     Route: 040
     Dates: start: 20240509, end: 20240509
  3. RITUXIMAB [Concomitant]
     Active Substance: RITUXIMAB
     Dosage: COMPLETION OF PLANNED COURSE, SINGLE IV INFUSION
     Route: 040
     Dates: start: 20240523, end: 20240523
  4. PREDNISOLONE [Concomitant]
     Active Substance: PREDNISOLONE
     Indication: Anti-neutrophil cytoplasmic antibody positive vasculitis
     Dosage: DAILY (OD), COMPLETION OF PLANNED COURSE
     Route: 048
     Dates: start: 20240503, end: 20240510
  5. PREDNISOLONE [Concomitant]
     Active Substance: PREDNISOLONE
     Dosage: DAILY (OD), COMPLETION OF PLANNED COURSE
     Route: 048
     Dates: start: 20240511, end: 20240518

REACTIONS (2)
  - Chest pain [Recovered/Resolved]
  - Body temperature abnormal [Recovered/Resolved]

NARRATIVE: CASE EVENT DATE: 20240718
